FAERS Safety Report 5226054-0 (Version None)
Quarter: 2007Q1

REPORT INFORMATION
  Report Type: 
  Country: None (occurrence: None)
  Receive Date: 20070201
  Receipt Date: 20070118
  Transmission Date: 20070707
  Serious: Yes (Hospitalization)
  Sender: FDA-Public Use
  Company Number: HQWYE842218JAN07

PATIENT
  Sex: Female
  Weight: 40 kg

DRUGS (5)
  1. ENBREL [Suspect]
     Indication: RHEUMATOID ARTHRITIS
     Route: 058
     Dates: start: 20051018
  2. TEPRENONE [Concomitant]
     Dosage: UNSPECIFIED
     Route: 048
  3. LOXONIN [Concomitant]
     Indication: RHEUMATOID ARTHRITIS
     Dosage: UNSPECIFIED
     Route: 048
  4. ALFACALCIDOL [Concomitant]
     Dosage: UNSPECIFIED
     Route: 048
  5. SELTOUCH [Concomitant]
     Indication: RHEUMATOID ARTHRITIS
     Dosage: UNSPECIFIED DOSE TAP

REACTIONS (1)
  - SARCOIDOSIS [None]
